FAERS Safety Report 4805414-3 (Version None)
Quarter: 2005Q4

REPORT INFORMATION
  Report Type: 
  Country: None (occurrence: None)
  Receive Date: 20051017
  Receipt Date: 20050929
  Transmission Date: 20060501
  Serious: Yes (Hospitalization)
  Sender: FDA-Public Use
  Company Number: 2005001921

PATIENT
  Age: 66 Year
  Sex: Male
  Weight: 56.6996 kg

DRUGS (3)
  1. TARCEVA [Suspect]
     Indication: NON-SMALL CELL LUNG CANCER
     Dosage: 150 MG (QD), ORAL
     Route: 048
     Dates: start: 20050920
  2. OXYCONTIN [Concomitant]
  3. OXICODEINE (OXYCODONE) [Concomitant]

REACTIONS (1)
  - FAECALOMA [None]
